FAERS Safety Report 5566803-5 (Version None)
Quarter: 2007Q4

REPORT INFORMATION
  Report Type: 
  Country: None (occurrence: None)
  Receive Date: 20071219
  Receipt Date: 20071217
  Transmission Date: 20080405
  Serious: Yes (Hospitalization)
  Sender: FDA-Public Use
  Company Number: B0492628A

PATIENT
  Age: 64 Year
  Sex: Male

DRUGS (2)
  1. GW572016 [Suspect]
     Indication: GASTRIC CANCER
     Dosage: 1500MG PER DAY
     Route: 048
     Dates: start: 20071004
  2. PACLITAXEL [Suspect]
     Indication: GASTRIC CANCER
     Dosage: 80MGM2 WEEKLY
     Route: 042
     Dates: start: 20071003

REACTIONS (3)
  - BACK PAIN [None]
  - INFECTION [None]
  - PYREXIA [None]
